FAERS Safety Report 17420236 (Version 3)
Quarter: 2020Q2

REPORT INFORMATION
  Report Type: Spontaneous
  Country: US (occurrence: US)
  Receive Date: 20200214
  Receipt Date: 20200421
  Transmission Date: 20200713
  Serious: No
  Sender: FDA-Public Use
  Company Number: US-B.I. PHARMACEUTICALS,INC./RIDGEFIELD-2020-US-008385

PATIENT
  Sex: Female

DRUGS (1)
  1. OFEV [Suspect]
     Active Substance: NINTEDANIB
     Indication: IDIOPATHIC PULMONARY FIBROSIS
     Dosage: 100MG, TWICE DAILY
     Route: 065

REACTIONS (3)
  - Mood altered [Not Recovered/Not Resolved]
  - Hypoaesthesia [Unknown]
  - Mood altered [Unknown]

NARRATIVE: CASE EVENT DATE: 2020
